FAERS Safety Report 19191087 (Version 2)
Quarter: 2021Q2

REPORT INFORMATION
  Report Type: Report from Study
  Country: US (occurrence: US)
  Receive Date: 20210428
  Receipt Date: 20210527
  Transmission Date: 20210717
  Serious: Yes (Death, Hospitalization)
  Sender: FDA-Public Use
  Company Number: US-INCYTE CORPORATION-2021IN003603

PATIENT

DRUGS (1)
  1. JAKAFI [Suspect]
     Active Substance: RUXOLITINIB
     Indication: PLATELET COUNT INCREASED
     Dosage: 5 MILLIGRAM, BID
     Route: 048

REACTIONS (3)
  - Off label use [Unknown]
  - COVID-19 [Fatal]
  - Heart rate increased [Not Recovered/Not Resolved]
